FAERS Safety Report 22241534 (Version 2)
Quarter: 2025Q1

REPORT INFORMATION
  Report Type: Report from Study
  Country: US (occurrence: US)
  Receive Date: 20230421
  Receipt Date: 20250324
  Transmission Date: 20250408
  Serious: No
  Sender: NOVARTIS
  Company Number: US-002147023-NVSC2023US089013

PATIENT
  Age: 35 Year
  Sex: Female

DRUGS (1)
  1. COSENTYX [Suspect]
     Active Substance: SECUKINUMAB
     Indication: Product used for unknown indication
     Dosage: 300 MG, QMO
     Route: 058
     Dates: start: 20200101, end: 20220201

REACTIONS (2)
  - Maternal exposure before pregnancy [Unknown]
  - Normal newborn [Unknown]

NARRATIVE: CASE EVENT DATE: 20220301
